FAERS Safety Report 13854322 (Version 1)
Quarter: 2017Q3

REPORT INFORMATION
  Report Type: Spontaneous
  Country: US (occurrence: US)
  Receive Date: 20170810
  Receipt Date: 20170810
  Transmission Date: 20171127
  Serious: No
  Sender: FDA-Public Use
  Company Number: None

PATIENT

DRUGS (2)
  1. TROPICAMIDE. [Suspect]
     Active Substance: TROPICAMIDE
     Route: 047
  2. TROPICAMIDE. [Suspect]
     Active Substance: TROPICAMIDE

REACTIONS (1)
  - Product packaging confusion [None]
